FAERS Safety Report 10089729 (Version 2)
Quarter: 2014Q2

REPORT INFORMATION
  Report Type: Report from Study
  Country: KR (occurrence: KR)
  Receive Date: 20140421
  Receipt Date: 20140421
  Transmission Date: 20141212
  Serious: Yes (Hospitalization)
  Sender: FDA-Public Use
  Company Number: PHHY2013KR119292

PATIENT
  Sex: 0

DRUGS (12)
  1. BROMOCRIPTINE [Suspect]
     Indication: PARKINSON^S DISEASE
     Dosage: 3.125 MG, BID
     Route: 048
     Dates: start: 20130524, end: 20130527
  2. BROMOCRIPTINE [Suspect]
     Dosage: 2.5 MG, BID
     Route: 048
     Dates: start: 20130528, end: 20130603
  3. BROMOCRIPTINE [Suspect]
     Dosage: 3.75 MG, BID
     Route: 048
     Dates: start: 20130604, end: 20130625
  4. BROMOCRIPTINE [Suspect]
     Dosage: 2.5 MG, BID
     Route: 048
     Dates: start: 20130625, end: 20130702
  5. BROMOCRIPTINE [Suspect]
     Dosage: 7.5 MG, BID
     Route: 048
     Dates: start: 20130703, end: 20130709
  6. BROMOCRIPTINE [Suspect]
     Dosage: 0.5 MG, TID
     Route: 048
     Dates: start: 20130710, end: 20130730
  7. BROMOCRIPTINE [Suspect]
     Dosage: 8.75 MG, TID
     Route: 048
     Dates: start: 20130731, end: 20130819
  8. BROMOCRIPTINE [Suspect]
     Dosage: 8.75 MG, QD
     Route: 048
     Dates: start: 20130820, end: 20130820
  9. PRAMIPEXOLE [Concomitant]
     Indication: PARKINSON^S DISEASE
     Dosage: 0.75 MG, BID
     Route: 048
     Dates: start: 20130820, end: 20130903
  10. POLYCARBOPHIL CALCIUM [Concomitant]
     Indication: CONSTIPATION
     Dosage: 625 MG, BID
     Route: 048
     Dates: start: 20130820, end: 20130903
  11. MAGNESIUM OXIDE [Concomitant]
     Indication: CONSTIPATION
     Dosage: 250 MG, BID
     Route: 048
     Dates: start: 20130820, end: 20130903
  12. MOTILIDONE [Concomitant]
     Indication: NAUSEA
     Dosage: 60 MG, BID
     Route: 048
     Dates: start: 20130820, end: 20130903

REACTIONS (1)
  - Hepatitis acute [Recovered/Resolved]
